FAERS Safety Report 21496759 (Version 3)
Quarter: 2024Q4

REPORT INFORMATION
  Report Type: Report from Study
  Country: US (occurrence: US)
  Receive Date: 20221022
  Receipt Date: 20241116
  Transmission Date: 20250115
  Serious: Yes (Hospitalization)
  Sender: TAKEDA
  Company Number: US-TAKEDA-2022TUS076337

PATIENT
  Age: 44 Year
  Sex: Female

DRUGS (8)
  1. TEDUGLUTIDE [Suspect]
     Active Substance: TEDUGLUTIDE
     Indication: Short-bowel syndrome
     Dosage: 3.9 MILLIGRAM, QD
     Dates: start: 20150601, end: 20160608
  2. TEDUGLUTIDE [Suspect]
     Active Substance: TEDUGLUTIDE
     Dosage: 3.8 MILLIGRAM, QD
     Dates: start: 20170801
  3. TEDUGLUTIDE [Suspect]
     Active Substance: TEDUGLUTIDE
  4. TEDUGLUTIDE [Suspect]
     Active Substance: TEDUGLUTIDE
  5. VANCOMYCIN [Concomitant]
     Active Substance: VANCOMYCIN
     Indication: Abdominal infection
     Dosage: 2000 MILLIGRAM, Q3HR
     Dates: end: 20211123
  6. VITAMINS [Concomitant]
     Active Substance: VITAMINS
     Indication: Supplementation therapy
     Dosage: 1 DOSAGE FORM, BID
     Dates: start: 20170617
  7. TRIAMCINOLONE [Concomitant]
     Active Substance: TRIAMCINOLONE
     Dosage: 1 DOSAGE FORM
     Route: 061
  8. IOPAMIDOL [Concomitant]
     Active Substance: IOPAMIDOL
     Dosage: 150 MILLILITER
     Dates: start: 20200624, end: 20200624

REACTIONS (1)
  - Incision site complication [Recovered/Resolved]

NARRATIVE: CASE EVENT DATE: 20220108
